FAERS Safety Report 7743189-9 (Version None)
Quarter: 2011Q3

REPORT INFORMATION
  Report Type: 
  Country: None (occurrence: None)
  Receive Date: 20110908
  Receipt Date: 20110908
  Transmission Date: 20111222
  Serious: Yes (Life-Threatening, Hospitalization, Disabling, Other)
  Sender: FDA-Public Use
  Company Number: None

PATIENT
  Sex: Female
  Weight: 51.7101 kg

DRUGS (4)
  1. METOCLOPRAMIDE [Suspect]
     Indication: GASTROOESOPHAGEAL REFLUX DISEASE
     Dosage: 10ML LIQUID 4 TIMES DAILY
     Dates: start: 20110718, end: 20110812
  2. METOCLOPRAMIDE [Suspect]
     Indication: ULCER
     Dosage: 10ML LIQUID 4 TIMES DAILY
     Dates: start: 20110718, end: 20110812
  3. METOCLOPRAMIDE [Suspect]
     Indication: INFLAMMATION
     Dosage: 10ML LIQUID 4 TIMES DAILY
     Dates: start: 20110718, end: 20110812
  4. METOCLOPRAMIDE [Suspect]
     Indication: OESOPHAGEAL SPASM
     Dosage: 10ML LIQUID 4 TIMES DAILY
     Dates: start: 20110718, end: 20110812

REACTIONS (40)
  - ASTHENIA [None]
  - CHEST DISCOMFORT [None]
  - CHROMATURIA [None]
  - MUSCLE RIGIDITY [None]
  - NAUSEA [None]
  - CHILLS [None]
  - FEELING JITTERY [None]
  - WEIGHT INCREASED [None]
  - TREMOR [None]
  - HEADACHE [None]
  - RESTLESSNESS [None]
  - VOMITING [None]
  - CONFUSIONAL STATE [None]
  - HYPERHIDROSIS [None]
  - RASH [None]
  - SWELLING [None]
  - BALANCE DISORDER [None]
  - SEXUAL DYSFUNCTION [None]
  - MOOD ALTERED [None]
  - DEPRESSION [None]
  - MUSCLE TWITCHING [None]
  - HEART RATE IRREGULAR [None]
  - ANXIETY [None]
  - SUICIDAL IDEATION [None]
  - VISUAL IMPAIRMENT [None]
  - OEDEMA PERIPHERAL [None]
  - URINARY INCONTINENCE [None]
  - PRURITUS GENERALISED [None]
  - OROPHARYNGEAL PAIN [None]
  - DIZZINESS [None]
  - COORDINATION ABNORMAL [None]
  - DYSPHONIA [None]
  - THINKING ABNORMAL [None]
  - HALLUCINATION [None]
  - AGITATION [None]
  - INSOMNIA [None]
  - DIARRHOEA [None]
  - SOMNOLENCE [None]
  - FATIGUE [None]
  - DYSPNOEA [None]
